FAERS Safety Report 9034780 (Version 1)
Quarter: 2013Q1

REPORT INFORMATION
  Report Type: Other
  Country: SE (occurrence: SE)
  Receive Date: 20130128
  Receipt Date: 20130128
  Transmission Date: 20140127
  Serious: Yes (Other)
  Sender: FDA-Public Use
  Company Number: SE-NICOBRDEVP-2013-01018

PATIENT
  Age: 78 Year
  Sex: Male

DRUGS (1)
  1. LOSARTAN POTASSIUM (UNKNOWN) [Suspect]
     Indication: PRODUCT USED FOR UNKNOWN INDICATION
     Dosage: UNKNOWN
     Route: 065

REACTIONS (5)
  - Decreased appetite [Unknown]
  - Fatigue [Unknown]
  - Gait disturbance [Unknown]
  - Dizziness [Unknown]
  - Confusional state [Unknown]
